FAERS Safety Report 13509945 (Version 2)
Quarter: 2017Q3

REPORT INFORMATION
  Report Type: Spontaneous
  Country: US (occurrence: US)
  Receive Date: 20170503
  Receipt Date: 20170803
  Transmission Date: 20171127
  Serious: No
  Sender: FDA-Public Use
  Company Number: US-SA-2017SA056135

PATIENT
  Age: 74 Year
  Sex: Female

DRUGS (14)
  1. PANTHENOL/RETINOL/THIAMINE HYDROCHLORIDE/ASCORBIC ACID/ERGOCALCIFEROL/FOLIC ACID/RIBOFLAVIN/NICOTINA [Concomitant]
  2. RESTASIS [Concomitant]
     Active Substance: CYCLOSPORINE
  3. KETOROLAC TROMETHAMINE. [Concomitant]
     Active Substance: KETOROLAC TROMETHAMINE
  4. PANTOPRAZOLE [Concomitant]
     Active Substance: PANTOPRAZOLE
  5. TOPROL XL [Concomitant]
     Active Substance: METOPROLOL SUCCINATE
  6. FISH OIL [Concomitant]
     Active Substance: FISH OIL
  7. TUMS [Concomitant]
     Active Substance: CALCIUM CARBONATE
  8. ALIROCUMAB PREFILLED PEN [Concomitant]
     Active Substance: ALIROCUMAB
     Dates: start: 2016
  9. CALCIUM CARBONATE. [Concomitant]
     Active Substance: CALCIUM CARBONATE
  10. PRALUENT [Suspect]
     Active Substance: ALIROCUMAB
     Route: 058
     Dates: start: 2016
  11. BIOTIN [Concomitant]
     Active Substance: BIOTIN
  12. BENAZEPRIL [Concomitant]
     Active Substance: BENAZEPRIL HYDROCHLORIDE
  13. LORATADINE. [Concomitant]
     Active Substance: LORATADINE
  14. CHOLEST-OFF [Concomitant]
     Active Substance: DIETARY SUPPLEMENT

REACTIONS (2)
  - Pain [Unknown]
  - Intervertebral disc protrusion [Unknown]

NARRATIVE: CASE EVENT DATE: 201702
